FAERS Safety Report 9344213 (Version 2)
Quarter: 2013Q3

REPORT INFORMATION
  Report Type: Report from Study
  Country: US (occurrence: US)
  Receive Date: 20130612
  Receipt Date: 20130711
  Transmission Date: 20140515
  Serious: Yes (Hospitalization)
  Sender: FDA-Public Use
  Company Number: US-JNJFOC-20130602657

PATIENT
  Age: 76 Year
  Sex: Female
  Weight: 82 kg

DRUGS (23)
  1. XARELTO [Suspect]
     Indication: CEREBROVASCULAR ACCIDENT PROPHYLAXIS
     Route: 048
  2. XARELTO [Suspect]
     Indication: CEREBROVASCULAR ACCIDENT PROPHYLAXIS
     Route: 048
     Dates: start: 20130225, end: 20130306
  3. XARELTO [Suspect]
     Indication: ATRIAL FIBRILLATION
     Route: 048
  4. XARELTO [Suspect]
     Indication: ATRIAL FIBRILLATION
     Route: 048
     Dates: start: 20130225, end: 20130306
  5. BUPROPION HYDROCHLORIDE [Concomitant]
     Indication: ANTIDEPRESSANT THERAPY
     Route: 048
     Dates: start: 1990
  6. MONTELUKAST SODIUM [Concomitant]
     Indication: ASTHMA
     Route: 065
     Dates: start: 1990
  7. METOPROLOL SUCCINATE [Concomitant]
     Indication: BLOOD PRESSURE ABNORMAL
     Route: 048
  8. METOPROLOL SUCCINATE [Concomitant]
     Indication: BLOOD PRESSURE ABNORMAL
     Route: 048
     Dates: start: 1990
  9. FLUOXETINE [Concomitant]
     Indication: ANTIDEPRESSANT THERAPY
     Route: 065
     Dates: start: 1990
  10. DIGOXIN [Concomitant]
     Indication: ATRIAL FIBRILLATION
     Route: 048
     Dates: start: 1990
  11. FERROUS SULPHATE [Concomitant]
     Indication: ANAEMIA
     Route: 048
     Dates: start: 1990
  12. LEVOXYL [Concomitant]
     Indication: HYPOTHYROIDISM
     Dosage: 175 MCG
     Route: 065
     Dates: start: 1990
  13. LIPITOR [Concomitant]
     Indication: HYPERLIPIDAEMIA
     Route: 065
     Dates: start: 1990
  14. FUROSEMIDE [Concomitant]
     Indication: CARDIAC FAILURE CONGESTIVE
     Route: 065
     Dates: start: 1990
  15. DILTIAZEM HYDROCHLORIDE [Concomitant]
     Indication: BLOOD PRESSURE ABNORMAL
     Route: 048
     Dates: start: 1990
  16. ALBUTEROL [Concomitant]
     Indication: ASTHMA
     Dosage: 1-2 PUFF
     Route: 065
     Dates: start: 1990
  17. TRAZODONE HYDROCHLORIDE [Concomitant]
     Indication: SLEEP DISORDER
     Dosage: 1/2 -2 TAB,AS NEEDED 25 TO 50 MG AT BEDTIME AS NEEDED FOR MILD TO MODERATE INSOMNIA
     Route: 048
     Dates: start: 1990
  18. KLOR CON [Concomitant]
     Indication: CARDIAC FAILURE CONGESTIVE
     Route: 065
     Dates: start: 1990
  19. POTASSIUM [Concomitant]
     Route: 048
  20. PROZAC [Concomitant]
     Route: 048
  21. SINGULAIR [Concomitant]
     Route: 048
  22. KEFLEX [Concomitant]
     Dosage: FOR 7 DAYS
     Route: 048
  23. TYLENOL [Concomitant]
     Dosage: 325/650 MG EVERY 4 HOURS AS NEEDED
     Route: 048

REACTIONS (1)
  - Myositis [Recovered/Resolved]
